FAERS Safety Report 7643964-5 (Version None)
Quarter: 2011Q3

REPORT INFORMATION
  Report Type: 
  Country: None (occurrence: None)
  Receive Date: 20110729
  Receipt Date: 20100819
  Transmission Date: 20111222
  Serious: No
  Sender: FDA-Public Use
  Company Number: US-GLAXOSMITHKLINE-A0877986A

PATIENT
  Age: 3 Month

DRUGS (1)
  1. ZANTAC [Suspect]
     Indication: PRODUCT USED FOR UNKNOWN INDICATION
     Dosage: 105MG THREE TIMES PER DAY
     Route: 048
     Dates: start: 20100801, end: 20100801

REACTIONS (3)
  - DRUG PRESCRIBING ERROR [None]
  - OVERDOSE [None]
  - INCORRECT DOSE ADMINISTERED [None]
